FAERS Safety Report 16185790 (Version 1)
Quarter: 2019Q2

REPORT INFORMATION
  Report Type: Spontaneous
  Country: GB (occurrence: GB)
  Receive Date: 20190411
  Receipt Date: 20190411
  Transmission Date: 20190711
  Serious: Yes (Other)
  Sender: FDA-Public Use
  Company Number: GB-JNJFOC-20190413748

PATIENT
  Age: 85 Year
  Sex: Male
  Weight: 83 kg

DRUGS (9)
  1. CLOBETASOL PROPIONATE. [Concomitant]
     Active Substance: CLOBETASOL PROPIONATE
     Route: 065
     Dates: start: 20180615
  2. CETIRIZINE [Concomitant]
     Active Substance: CETIRIZINE HYDROCHLORIDE
     Route: 065
     Dates: start: 20190312
  3. AMIODARONE [Concomitant]
     Active Substance: AMIODARONE
     Route: 065
     Dates: start: 20160118
  4. TAMSULOSIN HYDROCHLORIDE. [Concomitant]
     Active Substance: TAMSULOSIN HYDROCHLORIDE
     Route: 065
     Dates: start: 20160607
  5. MONOPOST [Concomitant]
     Active Substance: LATANOPROST
     Route: 065
     Dates: start: 20180625
  6. XARELTO [Suspect]
     Active Substance: RIVAROXABAN
     Indication: ATRIAL FIBRILLATION
     Route: 048
     Dates: start: 20190304
  7. FINASTERIDE. [Concomitant]
     Active Substance: FINASTERIDE
     Route: 065
     Dates: start: 20160118
  8. FUROSEMIDE. [Concomitant]
     Active Substance: FUROSEMIDE
     Route: 065
     Dates: start: 20160118
  9. ACETYLSALICYLIC ACID [Concomitant]
     Active Substance: ASPIRIN
     Route: 065
     Dates: start: 20160118, end: 20190201

REACTIONS (4)
  - Lip swelling [Recovering/Resolving]
  - Oropharyngeal pain [Unknown]
  - Mouth swelling [Recovering/Resolving]
  - Glossodynia [Unknown]

NARRATIVE: CASE EVENT DATE: 20190313
